FAERS Safety Report 9660938 (Version 1)
Quarter: 2013Q4

REPORT INFORMATION
  Report Type: Report from Study
  Country: US (occurrence: US)
  Receive Date: 20131031
  Receipt Date: 20131031
  Transmission Date: 20140711
  Serious: Yes (Hospitalization)
  Sender: FDA-Public Use
  Company Number: US-JNJFOC-20131015659

PATIENT
  Sex: Female

DRUGS (1)
  1. REMICADE [Suspect]
     Indication: CROHN^S DISEASE
     Route: 042

REACTIONS (8)
  - Ovarian cyst [Unknown]
  - Nephrolithiasis [Unknown]
  - Abdominal pain [Unknown]
  - Diarrhoea haemorrhagic [Unknown]
  - Blood urine present [Unknown]
  - Dyspepsia [Unknown]
  - Urinary tract infection [Recovered/Resolved]
  - Haemorrhoids [Unknown]
